FAERS Safety Report 6789104-6 (Version None)
Quarter: 2010Q2

REPORT INFORMATION
  Report Type: 
  Country: None (occurrence: None)
  Receive Date: 20100623
  Receipt Date: 20080812
  Transmission Date: 20101027
  Serious: No
  Sender: FDA-Public Use
  Company Number: US-PFIZER INC-2008045990

PATIENT
  Sex: Male
  Weight: 77.11 kg

DRUGS (3)
  1. GEODON [Suspect]
     Indication: POST-TRAUMATIC STRESS DISORDER
     Route: 048
     Dates: start: 20031020
  2. GEODON [Suspect]
     Indication: MAJOR DEPRESSION
  3. EFFEXOR XR [Concomitant]

REACTIONS (5)
  - ABDOMINAL PAIN [None]
  - COGNITIVE DISORDER [None]
  - INFLUENZA LIKE ILLNESS [None]
  - TREMOR [None]
  - WITHDRAWAL SYNDROME [None]
